FAERS Safety Report 12248438 (Version 1)
Quarter: 2016Q2

REPORT INFORMATION
  Report Type: Spontaneous
  Country: US (occurrence: None)
  Receive Date: 20160407
  Receipt Date: 20160407
  Transmission Date: 20160815
  Serious: Yes (Hospitalization, Disabling)
  Sender: FDA-Public Use
  Company Number: None

PATIENT
  Age: 36 Year
  Sex: Female
  Weight: 69.4 kg

DRUGS (1)
  1. LEVAQUIN [Suspect]
     Active Substance: LEVOFLOXACIN
     Indication: SINUSITIS
     Dosage: 10 TABLET(S) ONCE A DAY TAKEN BY MOUTH
     Route: 048
     Dates: start: 20160224, end: 20160401

REACTIONS (6)
  - Depression [None]
  - Weight increased [None]
  - Arthralgia [None]
  - Paraesthesia [None]
  - Eye irritation [None]
  - Hypothyroidism [None]

NARRATIVE: CASE EVENT DATE: 20160306
